FAERS Safety Report 8030953-4 (Version None)
Quarter: 2012Q1

REPORT INFORMATION
  Report Type: 
  Country: None (occurrence: None)
  Receive Date: 20120105
  Receipt Date: 20111222
  Transmission Date: 20120608
  Serious: Yes (Death)
  Sender: FDA-Public Use
  Company Number: 1000024305

PATIENT
  Age: 89 Year
  Sex: Male

DRUGS (4)
  1. LASIX [Concomitant]
  2. MEMANTINE HYDROCHLORIDE [Suspect]
     Indication: DEMENTIA
     Dosage: 5 MG (5 MG, 1 IN 1 D), ORAL
     Route: 048
     Dates: start: 20110722, end: 20110729
  3. URIEF (SILODOSIN) [Concomitant]
  4. TAMSULOSIN HCL [Concomitant]

REACTIONS (10)
  - MALNUTRITION [None]
  - BODY TEMPERATURE DECREASED [None]
  - PLEURAL EFFUSION [None]
  - ACUTE HEPATIC FAILURE [None]
  - LIVER DISORDER [None]
  - BLOOD UREA INCREASED [None]
  - HYPOGLYCAEMIA [None]
  - RESPIRATORY ARREST [None]
  - DIZZINESS [None]
  - DECREASED APPETITE [None]
